FAERS Safety Report 23041310 (Version 1)
Quarter: 2023Q4

REPORT INFORMATION
  Report Type: Spontaneous
  Country: GB (occurrence: GB)
  Receive Date: 20231007
  Receipt Date: 20231007
  Transmission Date: 20240110
  Serious: Yes (Other)
  Sender: FDA-Public Use
  Company Number: GB-VIIV HEALTHCARE ULC-GB2023EME130593

PATIENT
  Age: 60 Year
  Sex: Male

DRUGS (3)
  1. LAMIVUDINE [Suspect]
     Active Substance: LAMIVUDINE
     Indication: HIV infection
     Dosage: UNK
     Route: 065
     Dates: start: 20030601
  2. ZIDOVUDINE [Suspect]
     Active Substance: ZIDOVUDINE
     Indication: HIV infection
     Dosage: UNK
     Route: 065
     Dates: start: 20030601
  3. VIRACEPT [Suspect]
     Active Substance: NELFINAVIR MESYLATE
     Indication: HIV infection
     Dosage: UNK
     Route: 065
     Dates: start: 20030601

REACTIONS (1)
  - Lipodystrophy acquired [Unknown]
